FAERS Safety Report 4439219-2 (Version None)
Quarter: 2004Q3

REPORT INFORMATION
  Report Type: 
  Country: None (occurrence: None)
  Receive Date: 20040728
  Receipt Date: 20040312
  Transmission Date: 20050211
  Serious: No
  Sender: FDA-Public Use
  Company Number: USA040361991

PATIENT
  Age: 16 Year

DRUGS (1)
  1. STRATTERA [Suspect]
     Indication: ATTENTION DEFICIT/HYPERACTIVITY DISORDER
     Dosage: 40 MG IN THE MORNING
     Dates: start: 20040101

REACTIONS (4)
  - DRUG INEFFECTIVE [None]
  - FEELING ABNORMAL [None]
  - FEELING DRUNK [None]
  - PERSONALITY CHANGE [None]
